FAERS Safety Report 11756650 (Version 1)
Quarter: 2015Q4

REPORT INFORMATION
  Report Type: Report from Study
  Country: GB (occurrence: GB)
  Receive Date: 20151120
  Receipt Date: 20151120
  Transmission Date: 20160304
  Serious: Yes (Other)
  Sender: FDA-Public Use
  Company Number: GB-ABBVIE-15K-167-1500512-00

PATIENT
  Age: 52 Year
  Sex: Male
  Weight: 90 kg

DRUGS (4)
  1. BETNOVATE [Concomitant]
     Active Substance: BETAMETHASONE
     Indication: PRODUCT USED FOR UNKNOWN INDICATION
     Dates: start: 20100301
  2. DIPROBASE [Concomitant]
     Active Substance: CHLOROCRESOL
     Indication: PRODUCT USED FOR UNKNOWN INDICATION
     Dates: start: 20100301
  3. HUMIRA [Suspect]
     Active Substance: ADALIMUMAB
     Indication: PSORIASIS
     Route: 058
     Dates: start: 20130118, end: 20150524
  4. DOVOBET [Concomitant]
     Active Substance: BETAMETHASONE\CALCIPOTRIENE
     Indication: PRODUCT USED FOR UNKNOWN INDICATION
     Dates: start: 20100301

REACTIONS (9)
  - Abdominal distension [Recovering/Resolving]
  - Hypoaesthesia [Recovering/Resolving]
  - Paraesthesia [Recovered/Resolved]
  - Demyelination [Not Recovered/Not Resolved]
  - Peripheral swelling [Recovered/Resolved]
  - Local swelling [Recovering/Resolving]
  - Spinal cord disorder [Not Recovered/Not Resolved]
  - Paraesthesia [Recovering/Resolving]
  - Neurological symptom [Not Recovered/Not Resolved]

NARRATIVE: CASE EVENT DATE: 20150508
